FAERS Safety Report 10702350 (Version 2)
Quarter: 2015Q1

REPORT INFORMATION
  Report Type: Spontaneous
  Country: JP (occurrence: JP)
  Receive Date: 20150109
  Receipt Date: 20150203
  Transmission Date: 20150721
  Serious: Yes (Other)
  Sender: FDA-Public Use
  Company Number: JP-GLAXOSMITHKLINE-JP2015JPN000053

PATIENT
  Age: 70 Year
  Sex: Female
  Weight: 39 kg

DRUGS (5)
  1. AIMIX [Concomitant]
     Active Substance: AMLODIPINE BESYLATE\IRBESARTAN
     Dosage: 1 DF, QD
     Dates: start: 20140714
  2. AVAPRO [Concomitant]
     Active Substance: IRBESARTAN
     Dosage: 100 MG, QD
     Dates: start: 20141024
  3. VOTRIENT [Suspect]
     Active Substance: PAZOPANIB HYDROCHLORIDE
     Indication: ANGIOSARCOMA
     Dosage: 800 MG, QD
     Route: 048
     Dates: start: 20140612, end: 20140716
  4. FUROSEMIDE. [Concomitant]
     Active Substance: FUROSEMIDE
     Dosage: 20 MG, QD
  5. VOTRIENT [Suspect]
     Active Substance: PAZOPANIB HYDROCHLORIDE
     Dosage: 600 MG, QD
     Route: 048
     Dates: start: 20140717, end: 20141127

REACTIONS (7)
  - Epilepsy [Recovering/Resolving]
  - Seizure [Unknown]
  - Encephalitis [Unknown]
  - Somnolence [Unknown]
  - Loss of consciousness [Unknown]
  - Meningitis bacterial [Unknown]
  - Disorientation [Unknown]

NARRATIVE: CASE EVENT DATE: 20141129
